FAERS Safety Report 19511157 (Version 4)
Quarter: 2022Q1

REPORT INFORMATION
  Report Type: Spontaneous
  Country: DE (occurrence: DE)
  Receive Date: 20210709
  Receipt Date: 20220203
  Transmission Date: 20220424
  Serious: Yes (Hospitalization, Other)
  Sender: FDA-Public Use
  Company Number: DE-ADRED-06542-01

PATIENT
  Age: 95 Year
  Sex: Male

DRUGS (25)
  1. RAMIPRIL [Suspect]
     Active Substance: RAMIPRIL
     Indication: Product used for unknown indication
     Dosage: 5 MILLIGRAM (MIX-UP)
     Route: 048
  2. METOPROLOL [Suspect]
     Active Substance: METOPROLOL
     Indication: Product used for unknown indication
     Dosage: 47.5 MILLIGRAM (MIX-UP)
     Route: 048
  3. NITRENDIPINE [Suspect]
     Active Substance: NITRENDIPINE
     Indication: Product used for unknown indication
     Dosage: 20 MILLIGRAM (MIX-UP)
     Route: 048
  4. SPIRONOLACTONE [Concomitant]
     Active Substance: SPIRONOLACTONE
     Indication: Product used for unknown indication
     Dosage: 50 MILLIGRAM (0.5-0-0-0)
     Route: 048
  5. SPIRONOLACTONE [Concomitant]
     Active Substance: SPIRONOLACTONE
     Dosage: 0.5 DOSAGE FORM, 0.5 DF, QD (50 MG, 0.5-0-0-0, TABLETS   )
     Route: 048
  6. MELPERONE [Concomitant]
     Active Substance: MELPERONE
     Indication: Product used for unknown indication
     Dosage: 25 MILLIGRAM (0-0-1-0)
     Route: 048
  7. MELPERONE [Concomitant]
     Active Substance: MELPERONE
     Dosage: 25 MILLIGRAM (IF NECESSARY)
     Route: 048
  8. MELPERONE [Concomitant]
     Active Substance: MELPERONE
     Dosage: 1 DOSAGE FORM, ONCE A DAY (25 MG, 0-0-1-0, TABLETS)
     Route: 048
  9. SULFAMETHOXAZOLE\TRIMETHOPRIM [Concomitant]
     Active Substance: SULFAMETHOXAZOLE\TRIMETHOPRIM
     Indication: Product used for unknown indication
     Dosage: 960 MILLIGRAM (1-0-1-0)
     Route: 048
  10. SULFAMETHOXAZOLE\TRIMETHOPRIM [Concomitant]
     Active Substance: SULFAMETHOXAZOLE\TRIMETHOPRIM
     Dosage: 2 DOSAGE FORM, TWO TIMES A DAY (960 MG, 1-0-1-0, TABLETS)
     Route: 048
  11. METOCLOPRAMIDE [Concomitant]
     Active Substance: METOCLOPRAMIDE
     Indication: Product used for unknown indication
     Dosage: 10 MILLIGRAM (IF NECESSARY)
     Route: 048
  12. EMPAGLIFLOZIN [Concomitant]
     Active Substance: EMPAGLIFLOZIN
     Indication: Product used for unknown indication
     Dosage: 10 MILLIGRAM (1-0-0-0)
     Route: 048
  13. EMPAGLIFLOZIN [Concomitant]
     Active Substance: EMPAGLIFLOZIN
     Dosage: 1 DOSAGE FORM, ONCE A DAY (10 MG, 1-0-0-0, TABLETS)
     Route: 048
  14. HERBALS\PLANTAGO OVATA SEED [Concomitant]
     Active Substance: HERBALS\PLANTAGO OVATA SEED
     Indication: Product used for unknown indication
     Dosage: UNK (IF NECESSARY, GRANULES)
     Route: 048
  15. SACCHAROMYCES CEREVISIAE [Concomitant]
     Active Substance: SACCHAROMYCES CEREVISIAE
     Indication: Product used for unknown indication
     Dosage: 50 MILLIGRAM (IF NECESSARY)
     Route: 048
  16. MEMANTINE [Concomitant]
     Active Substance: MEMANTINE
     Indication: Product used for unknown indication
     Dosage: 10 MILLIGRAM (1-0-0-0)
     Route: 048
  17. MEMANTINE [Concomitant]
     Active Substance: MEMANTINE
     Dosage: 1 DOSAGE FORM, ONCE A DAY ((10 MG, 1-0-0-0, TABLETS) )
     Route: 048
  18. METAMIZOLE [Concomitant]
     Active Substance: METAMIZOLE
     Indication: Product used for unknown indication
     Dosage: 20 DROP
     Route: 048
  19. TORSEMIDE [Concomitant]
     Active Substance: TORSEMIDE
     Indication: Product used for unknown indication
     Dosage: 10 MILLIGRAM (1-0-0-0)
     Route: 048
  20. TORSEMIDE [Concomitant]
     Active Substance: TORSEMIDE
     Dosage: 1 DOSAGE FORM, ONCE A DAY (10 MG, 1-0-0-0, TABLETS)
     Route: 048
  21. ASPIRIN [Concomitant]
     Active Substance: ASPIRIN
     Indication: Product used for unknown indication
     Dosage: 100 MILLIGRAM (0-1-0-0)
     Route: 048
  22. ASPIRIN [Concomitant]
     Active Substance: ASPIRIN
     Dosage: 1 DOSAGE FORM, ONCE A DAY (100 MG, 0-1-0-0, TABLETS)
     Route: 048
  23. ATORVASTATIN [Concomitant]
     Active Substance: ATORVASTATIN
     Indication: Product used for unknown indication
     Dosage: 10 MILLIGRAM (0-0-1-0)
     Route: 048
  24. ATORVASTATIN [Concomitant]
     Active Substance: ATORVASTATIN
     Dosage: 1 DOSAGE FORM, ONCE A DAY (10 MG, 0-0-1-0, TABLETS)
     Route: 048
  25. HERBALS\PLANTAGO OVATA SEED [Suspect]
     Active Substance: HERBALS\PLANTAGO OVATA SEED
     Indication: Product used for unknown indication
     Dosage: AS NECESSARY
     Route: 048

REACTIONS (3)
  - Bradycardia [Unknown]
  - Hypotension [Unknown]
  - Wrong product administered [Unknown]

NARRATIVE: CASE EVENT DATE: 20210412
